FAERS Safety Report 4330759-3 (Version None)
Quarter: 2004Q1

REPORT INFORMATION
  Report Type: 
  Country: None (occurrence: None)
  Receive Date: 20040329
  Receipt Date: 20040315
  Transmission Date: 20041129
  Serious: Yes (Death)
  Sender: FDA-Public Use
  Company Number: US-JNJFOC-20031202342

PATIENT
  Age: 68 Year
  Sex: Male
  Weight: 70.3075 kg

DRUGS (6)
  1. DURAGESIC [Suspect]
     Indication: PAIN
     Dosage: SEE IMAGE
     Route: 062
     Dates: start: 20031209, end: 20031210
  2. DURAGESIC [Suspect]
     Indication: PAIN
     Dosage: SEE IMAGE
     Route: 062
     Dates: start: 20031216, end: 20031222
  3. DURAGESIC [Suspect]
     Indication: PAIN
     Dosage: SEE IMAGE
     Route: 062
     Dates: start: 20031202, end: 20041209
  4. CHEMOTHERAPY  (ANTINEOPLASTIC AGENTS) [Concomitant]
  5. XANAX [Concomitant]
  6. MEGACE [Concomitant]

REACTIONS (5)
  - ANXIETY [None]
  - COLD SWEAT [None]
  - DYSPNOEA [None]
  - HYPOVENTILATION [None]
  - INCOHERENT [None]
